FAERS Safety Report 14702313 (Version 2)
Quarter: 2018Q2

REPORT INFORMATION
  Report Type: Spontaneous
  Country: US (occurrence: US)
  Receive Date: 20180401
  Receipt Date: 20180509
  Transmission Date: 20180711
  Serious: No
  Sender: FDA-Public Use
  Company Number: US-PFM-2018-03515

PATIENT

DRUGS (1)
  1. HEMANGEOL [Suspect]
     Active Substance: PROPRANOLOL HYDROCHLORIDE
     Indication: INFANTILE HAEMANGIOMA
     Dosage: 0.8 ML, SINGLE (FED WITH DOSE)
     Route: 048
     Dates: start: 20180316, end: 20180316

REACTIONS (3)
  - Pallor [Recovered/Resolved]
  - Heart rate decreased [Recovered/Resolved]
  - Cyanosis [Recovered/Resolved]

NARRATIVE: CASE EVENT DATE: 20180316
